FAERS Safety Report 4840421-6 (Version None)
Quarter: 2005Q4

REPORT INFORMATION
  Report Type: 
  Country: None (occurrence: None)
  Receive Date: 20051101
  Receipt Date: 20050705
  Transmission Date: 20060501
  Serious: No
  Sender: FDA-Public Use
  Company Number: MK200507-0052-1

PATIENT
  Age: 47 Year
  Sex: Female

DRUGS (2)
  1. NEUTROSPEC [Suspect]
     Indication: DIAGNOSTIC PROCEDURE
     Dosage: 15 MCI, ONCE
     Dates: start: 20050705, end: 20050705
  2. NEUTROSPEC [Suspect]
     Indication: INFECTION
     Dosage: 15 MCI, ONCE
     Dates: start: 20050705, end: 20050705

REACTIONS (4)
  - DYSPNOEA [None]
  - FLUSHING [None]
  - HEADACHE [None]
  - OXYGEN SATURATION DECREASED [None]
